FAERS Safety Report 8942652 (Version 2)
Quarter: 2014Q1

REPORT INFORMATION
  Report Type: Spontaneous
  Country: US (occurrence: US)
  Receive Date: 20121204
  Receipt Date: 20140116
  Transmission Date: 20141002
  Serious: Yes (Other)
  Sender: FDA-Public Use
  Company Number: US-BAYER-2012-125986

PATIENT
  Age: 33 Year
  Sex: Female

DRUGS (10)
  1. YAZ [Suspect]
     Dosage: UNK
     Dates: start: 20090512
  2. YASMIN [Suspect]
     Dosage: UNK
     Dates: start: 20090512
  3. OCELLA [Suspect]
     Dosage: UNK
     Dates: start: 20090512
  4. GIANVI [Suspect]
     Dosage: UNK
     Dates: start: 20090512
  5. CIPROFLOXACIN [Concomitant]
     Dosage: 500 MG, EVERY 12 HOURS FOR 7 DAYS
     Route: 048
  6. SYNTHROID [Concomitant]
  7. MORPHINE [Concomitant]
  8. ZOFRAN [Concomitant]
  9. COMPAZINE [Concomitant]
  10. DILAUDID [Concomitant]

REACTIONS (9)
  - Gallbladder injury [None]
  - Cholecystitis acute [None]
  - Deep vein thrombosis [None]
  - Injury [None]
  - Pain [None]
  - General physical health deterioration [None]
  - Emotional distress [None]
  - Anxiety [None]
  - Pain [None]
